FAERS Safety Report 5177067-9 (Version None)
Quarter: 2006Q4

REPORT INFORMATION
  Report Type: 
  Country: None (occurrence: None)
  Receive Date: 20061218
  Receipt Date: 20061211
  Transmission Date: 20070319
  Serious: Yes (Hospitalization)
  Sender: FDA-Public Use
  Company Number: CZ-GLAXOSMITHKLINE-B0450785A

PATIENT
  Age: 1 Year
  Sex: Female

DRUGS (2)
  1. AUGMENTIN '125' [Suspect]
     Indication: ACUTE TONSILLITIS
     Dosage: 3ML TWICE PER DAY
     Route: 048
     Dates: start: 20061118, end: 20061123
  2. NASIVIN [Concomitant]
     Route: 045

REACTIONS (3)
  - HAEMATOMA [None]
  - JOINT SWELLING [None]
  - URTICARIA [None]
